FAERS Safety Report 16697324 (Version 1)
Quarter: 2019Q4

REPORT INFORMATION
  Report Type: Spontaneous
  Country: US (occurrence: US)
  Receive Date: 20190812
  Receipt Date: 20190812
  Transmission Date: 20200122
  Serious: Yes (Death)
  Sender: FDA-Public Use
  Company Number: None

PATIENT
  Age: 31 Year
  Sex: Male

DRUGS (5)
  1. HUMIRA [Suspect]
     Active Substance: ADALIMUMAB
     Dosage: ?          OTHER FREQUENCY:EVERY 2 WEEKS;?
     Route: 058
  2. LEVOTHYROXINE. [Concomitant]
     Active Substance: LEVOTHYROXINE
  3. BUPROPION. [Concomitant]
     Active Substance: BUPROPION
  4. MODAFINIL. [Concomitant]
     Active Substance: MODAFINIL
  5. CLOZAPINE. [Concomitant]
     Active Substance: CLOZAPINE

REACTIONS (1)
  - Death [None]

NARRATIVE: CASE EVENT DATE: 20190809
